FAERS Safety Report 8112626-2 (Version None)
Quarter: 2012Q1

REPORT INFORMATION
  Report Type: 
  Country: None (occurrence: None)
  Receive Date: 20120203
  Receipt Date: 20120124
  Transmission Date: 20120608
  Serious: Yes (Hospitalization)
  Sender: FDA-Public Use
  Company Number: US-NOVOPROD-336710

PATIENT
  Age: 48 Year
  Sex: Female
  Weight: 105.7 kg

DRUGS (17)
  1. NEURONTIN [Concomitant]
     Dosage: 900 MG, QD
     Dates: start: 20100114
  2. ACETAMINOPHEN [Concomitant]
     Dosage: 1950 MG, QD
     Route: 048
     Dates: start: 20101130
  3. TRAZODONE HCL [Concomitant]
     Indication: DEPRESSION
     Dosage: 150 MG, QD
     Route: 048
     Dates: start: 20110112
  4. FLEXERIL [Concomitant]
     Dosage: 30 MG, QD
     Route: 048
     Dates: start: 20091202
  5. ZOCOR [Concomitant]
     Dosage: 80 MG, QD
     Dates: start: 20100114
  6. PRILOSEC [Concomitant]
     Dosage: 40 MG, QD
     Dates: start: 20091202
  7. QVAR 40 [Concomitant]
     Dosage: UNK
     Route: 055
     Dates: start: 20100317
  8. LISINOPRIL [Concomitant]
     Indication: PROPHYLAXIS
     Dosage: 5 MG, QD
     Route: 048
     Dates: start: 20100628
  9. BENADRYL [Concomitant]
     Dosage: 25 MG, QD
     Route: 048
     Dates: start: 20091202
  10. OXYCONTIN [Concomitant]
     Dosage: 60 MG, QD
     Dates: start: 20101130
  11. ALBUTEROL [Concomitant]
     Dosage: UNK
     Route: 055
     Dates: start: 20100317
  12. MAGNESIUM OXIDE [Concomitant]
     Indication: NON-CARDIAC CHEST PAIN
     Dosage: 325.0 MG, QD
     Dates: start: 20110720, end: 20110721
  13. LOPRESOR                           /00376902/ [Concomitant]
     Indication: CORONARY ARTERY DISEASE
     Dosage: 50 MG, QD
     Dates: start: 20100110
  14. NITROSTAT [Concomitant]
     Dosage: 0.4 MG, QD
     Route: 048
     Dates: start: 20091202
  15. LIRAGLUTIDE FLEXPEN [Suspect]
     Indication: TYPE 2 DIABETES MELLITUS
     Dosage: 1.8 MG, QD
     Route: 058
     Dates: start: 20110711
  16. RISPERDAL [Concomitant]
     Indication: DEPRESSION
     Dosage: 2 MG, QD
     Dates: start: 20100114
  17. PLAVIX [Concomitant]
     Indication: CORONARY ARTERY DISEASE
     Dosage: 75 MG, QD
     Dates: start: 20091202

REACTIONS (1)
  - GASTROOESOPHAGEAL REFLUX DISEASE [None]
